FAERS Safety Report 8795919 (Version 2)
Quarter: 2012Q4

REPORT INFORMATION
  Report Type: 
  Country: US (occurrence: US)
  Receive Date: 20120919
  Receipt Date: 20120924
  Transmission Date: 20130627
  Serious: Yes (Hospitalization, Other)
  Sender: FDA-Public Use
  Company Number: US-ALEXION-A201201716

PATIENT
  Sex: Male

DRUGS (3)
  1. SOLIRIS 300MG [Suspect]
     Indication: HAEMOLYTIC URAEMIC SYNDROME
     Dosage: 900 mg, qw
     Route: 042
     Dates: start: 20120406, end: 20120427
  2. SOLIRIS 300MG [Suspect]
     Dosage: 1200 mg, q2w
     Route: 042
     Dates: start: 20120427, end: 20120703
  3. SOLIRIS 300MG [Suspect]
     Dosage: 1200 mg Q10D
     Route: 042
     Dates: start: 20120703

REACTIONS (3)
  - Device related infection [Unknown]
  - Pneumonia [Unknown]
  - Sepsis [Unknown]
